FAERS Safety Report 6818252-7 (Version None)
Quarter: 2010Q3

REPORT INFORMATION
  Report Type: 
  Country: None (occurrence: None)
  Receive Date: 20100706
  Receipt Date: 20070328
  Transmission Date: 20110219
  Serious: No
  Sender: FDA-Public Use
  Company Number: US-PFIZER INC-2007003049

PATIENT
  Sex: Male

DRUGS (2)
  1. ZITHROMAX [Suspect]
     Indication: RESPIRATORY TRACT INFECTION
     Dates: start: 19990801
  2. ZITHROMAX [Suspect]
     Indication: SINUSITIS

REACTIONS (5)
  - ARTHRALGIA [None]
  - IDIOSYNCRATIC DRUG REACTION [None]
  - INFLUENZA [None]
  - JOINT RANGE OF MOTION DECREASED [None]
  - PAIN [None]
